FAERS Safety Report 15359174 (Version 1)
Quarter: 2018Q3

REPORT INFORMATION
  Report Type: Report from Study
  Country: None (occurrence: LB)
  Receive Date: 20180907
  Receipt Date: 20180907
  Transmission Date: 20181010
  Serious: Yes (Disabling)
  Sender: FDA-Public Use
  Company Number: LB-ABBVIE-18K-093-2477025-00

PATIENT
  Age: 56 Year
  Sex: Female
  Weight: 75 kg

DRUGS (1)
  1. HUMIRA [Suspect]
     Active Substance: ADALIMUMAB
     Indication: ANKYLOSING SPONDYLITIS
     Route: 058
     Dates: start: 201611, end: 20180817

REACTIONS (6)
  - Visual impairment [Recovered/Resolved]
  - Onychoclasis [Not Recovered/Not Resolved]
  - Blood cholesterol abnormal [Not Recovered/Not Resolved]
  - Dermatitis allergic [Recovered/Resolved]
  - Alopecia [Not Recovered/Not Resolved]
  - Rheumatoid factor increased [Not Recovered/Not Resolved]

NARRATIVE: CASE EVENT DATE: 2017
